FAERS Safety Report 8513869-6 (Version None)
Quarter: 2012Q3

REPORT INFORMATION
  Report Type: 
  Country: None (occurrence: None)
  Receive Date: 20120717
  Receipt Date: 20120712
  Transmission Date: 20120928
  Serious: Yes (Other)
  Sender: FDA-Public Use
  Company Number: US-TEVA-348115USA

PATIENT
  Sex: Female

DRUGS (2)
  1. GABAPENTIN [Suspect]
  2. COPAXONE [Suspect]
     Indication: MULTIPLE SCLEROSIS
     Dates: start: 20080614

REACTIONS (2)
  - MULTIPLE SCLEROSIS RELAPSE [None]
  - FORMICATION [None]
